FAERS Safety Report 24899384 (Version 1)
Quarter: 2025Q1

REPORT INFORMATION
  Report Type: Spontaneous
  Country: FR (occurrence: FR)
  Receive Date: 20250129
  Receipt Date: 20250129
  Transmission Date: 20250409
  Serious: Yes (Hospitalization)
  Sender: AIRGAS
  Company Number: FR-AFSSAPS-AVCN2025000042

PATIENT
  Age: 20 Year
  Sex: Male

DRUGS (1)
  1. NITROUS OXIDE [Suspect]
     Active Substance: NITROUS OXIDE
     Indication: Product used for unknown indication

REACTIONS (7)
  - Ischaemic stroke [Recovered/Resolved with Sequelae]
  - Paresis [Not Recovered/Not Resolved]
  - Ataxia [Not Recovered/Not Resolved]
  - Dysarthria [Not Recovered/Not Resolved]
  - Facial paralysis [Not Recovered/Not Resolved]
  - Reversible cerebral vasoconstriction syndrome [Not Recovered/Not Resolved]
  - Cerebrovascular stenosis [Not Recovered/Not Resolved]
